FAERS Safety Report 19971282 (Version 8)
Quarter: 2022Q2

REPORT INFORMATION
  Report Type: Report from Study
  Country: GR (occurrence: GR)
  Receive Date: 20211020
  Receipt Date: 20220609
  Transmission Date: 20220721
  Serious: Yes (Hospitalization, Other)
  Sender: FDA-Public Use
  Company Number: GR-ABBVIE-21K-066-4122352-00

PATIENT
  Age: 71 Year
  Sex: Female
  Weight: 70 kg

DRUGS (10)
  1. CARBIDOPA\LEVODOPA [Suspect]
     Active Substance: CARBIDOPA\LEVODOPA
     Indication: Parkinson^s disease
     Dosage: MORNING DOSE: 12 ML; CONTINUOUS RATE: 3 ML/H; EXTRA DOSE: 1.5 ML
     Route: 050
     Dates: start: 20201016
  2. CARBIDOPA\LEVODOPA [Suspect]
     Active Substance: CARBIDOPA\LEVODOPA
     Dosage: MORNING DOSE: 12 ML; CONTINUOUS RATE: 3.2 ML/H; EXTRA DOSE: 1.5 ML
     Route: 050
  3. CARBIDOPA\LEVODOPA [Suspect]
     Active Substance: CARBIDOPA\LEVODOPA
     Dosage: MORNING DOSE: 12 ML; CONTINUOUS RATE: 3 ML/H; EXTRA DOSE: 1.5 ML
     Route: 050
  4. CARBIDOPA\LEVODOPA [Suspect]
     Active Substance: CARBIDOPA\LEVODOPA
     Dosage: MORNING DOSE: 12 ML; CONTINUOUS RATE: 2.8 ML/H; EXTRA DOSE: 1.5 ML
     Route: 050
  5. CARBIDOPA\LEVODOPA [Suspect]
     Active Substance: CARBIDOPA\LEVODOPA
     Dosage: MORNING DOSE: 12 ML; CONTINUOUS RATE: 2.6 ML/H; EXTRA DOSE: 1.5 ML
     Route: 050
  6. CRESTOR [Concomitant]
     Active Substance: ROSUVASTATIN CALCIUM
     Indication: Product used for unknown indication
     Route: 048
  7. ESELAN [Concomitant]
     Indication: Product used for unknown indication
     Route: 048
  8. PLAVIX [Concomitant]
     Active Substance: CLOPIDOGREL BISULFATE
     Indication: Product used for unknown indication
     Route: 048
  9. IRBEPRESS PLUS [Concomitant]
     Indication: Product used for unknown indication
     Dosage: UNIT DOSE: (150+6.25)MG; FORM STRENGTH: (300+12.5)MG
     Route: 048
  10. SEROQUEL [Concomitant]
     Active Substance: QUETIAPINE FUMARATE
     Indication: Product used for unknown indication

REACTIONS (11)
  - Hip fracture [Recovering/Resolving]
  - Bedridden [Recovering/Resolving]
  - Gait disturbance [Unknown]
  - Fall [Recovering/Resolving]
  - Post procedural complication [Not Recovered/Not Resolved]
  - Fall [Recovered/Resolved]
  - Hallucination, visual [Not Recovered/Not Resolved]
  - Hyperkinesia [Recovering/Resolving]
  - Hallucination, auditory [Not Recovered/Not Resolved]
  - Confusional state [Not Recovered/Not Resolved]
  - Unevaluable event [Recovering/Resolving]

NARRATIVE: CASE EVENT DATE: 20211010
